FAERS Safety Report 5165531-8 (Version None)
Quarter: 2006Q4

REPORT INFORMATION
  Report Type: 
  Country: None (occurrence: None)
  Receive Date: 20061206
  Receipt Date: 20061128
  Transmission Date: 20070319
  Serious: Yes (Hospitalization, Other)
  Sender: FDA-Public Use
  Company Number: CA-MERCK-0611CAN00214

PATIENT
  Age: 64 Year
  Sex: Female

DRUGS (8)
  1. COZAAR [Suspect]
     Indication: HYPERTENSION
     Route: 048
     Dates: start: 20051024, end: 20060115
  2. COZAAR [Suspect]
     Route: 048
     Dates: start: 20060116
  3. ASPIRIN [Suspect]
     Indication: CORONARY ARTERY DISEASE
     Route: 065
     Dates: start: 19980824
  4. ROSUVASTATIN CALCIUM [Concomitant]
     Indication: HYPERCHOLESTEROLAEMIA
     Route: 065
     Dates: start: 20050503
  5. PANTOPRAZOLE SODIUM [Concomitant]
     Indication: OESOPHAGITIS
     Route: 065
     Dates: start: 20010607
  6. LEVOTHYROXINE SODIUM [Concomitant]
     Indication: HYPOTHYROIDISM
     Route: 065
     Dates: start: 19980824
  7. ATENOLOL [Concomitant]
     Indication: ANGINA PECTORIS
     Route: 065
     Dates: start: 19990305
  8. FERROUS SULFATE TAB [Concomitant]
     Indication: ANAEMIA
     Route: 065
     Dates: start: 20060505

REACTIONS (2)
  - GASTRIC ULCER HAEMORRHAGE [None]
  - IRON DEFICIENCY ANAEMIA [None]
